FAERS Safety Report 9159783 (Version 1)
Quarter: 2013Q1

REPORT INFORMATION
  Report Type: Spontaneous
  Country: FR (occurrence: None)
  Receive Date: 20130219
  Receipt Date: 20130219
  Transmission Date: 20140127
  Serious: Yes (Hospitalization)
  Sender: FDA-Public Use
  Company Number: DSM-2013-00214

PATIENT
  Age: 70 Year
  Sex: Female

DRUGS (3)
  1. COOLMETEC [Suspect]
     Indication: HYPERTENSION
     Route: 048
     Dates: end: 20120226
  2. TAHOR [Concomitant]
  3. HYPERIUM [Concomitant]

REACTIONS (11)
  - Diarrhoea haemorrhagic [None]
  - Hepatocellular injury [None]
  - Renal failure [None]
  - Hypokalaemia [None]
  - Dehydration [None]
  - Weight decreased [None]
  - Hypotension [None]
  - Asthenia [None]
  - Decreased appetite [None]
  - Thirst [None]
  - Arthralgia [None]
